FAERS Safety Report 15436329 (Version 1)
Quarter: 2018Q3

REPORT INFORMATION
  Report Type: Report from Study
  Country: US (occurrence: US)
  Receive Date: 20180927
  Receipt Date: 20180927
  Transmission Date: 20181010
  Serious: Yes (Other)
  Sender: FDA-Public Use
  Company Number: PHEH2018US040048

PATIENT
  Sex: Female
  Weight: 65.7 kg

DRUGS (1)
  1. GLATOPA [Suspect]
     Active Substance: GLATIRAMER ACETATE
     Indication: MULTIPLE SCLEROSIS
     Dosage: 20 MG, QD (ROTATES SITE)
     Route: 058

REACTIONS (3)
  - Injection site reaction [Not Recovered/Not Resolved]
  - Injection site necrosis [Not Recovered/Not Resolved]
  - Palpitations [Not Recovered/Not Resolved]
